FAERS Safety Report 15836947 (Version 1)
Quarter: 2019Q1

REPORT INFORMATION
  Report Type: Report from Study
  Country: CA (occurrence: CA)
  Receive Date: 20190117
  Receipt Date: 20190117
  Transmission Date: 20190417
  Serious: Yes (Life-Threatening, Hospitalization, Disabling, Other)
  Sender: FDA-Public Use
  Company Number: CA-ORION CORPORATION ORION PHARMA-TREX2019-0087

PATIENT
  Age: 55 Year
  Sex: Female
  Weight: 81 kg

DRUGS (3)
  1. REMICADE [Suspect]
     Active Substance: INFLIXIMAB
     Indication: RHEUMATOID ARTHRITIS
     Route: 042
  2. REMICADE [Suspect]
     Active Substance: INFLIXIMAB
     Route: 042
  3. METHOTREXATE (TRADE NAME UNKNOWN) [Suspect]
     Active Substance: METHOTREXATE
     Indication: PRODUCT USED FOR UNKNOWN INDICATION
     Route: 065

REACTIONS (10)
  - Haematuria [Recovered/Resolved]
  - Hypertension [Recovered/Resolved]
  - Intestinal resection [Recovered/Resolved]
  - Pneumatosis [Recovered/Resolved]
  - Intestinal infarction [Recovered/Resolved]
  - Mesenteric artery thrombosis [Recovered/Resolved]
  - Myocardial infarction [Recovered/Resolved]
  - Pneumoperitoneum [Recovered/Resolved]
  - Blood creatinine increased [Recovered/Resolved]
  - Sepsis [Recovered/Resolved]
